FAERS Safety Report 16705260 (Version 6)
Quarter: 2019Q4

REPORT INFORMATION
  Report Type: Spontaneous
  Country: JP (occurrence: JP)
  Receive Date: 20190815
  Receipt Date: 20191204
  Transmission Date: 20200122
  Serious: Yes (Death, Life-Threatening, Hospitalization, Other)
  Sender: FDA-Public Use
  Company Number: JP-009507513-1908JPN001178J

PATIENT
  Age: 70 Year
  Sex: Male
  Weight: 65 kg

DRUGS (3)
  1. ABRAXANE [Suspect]
     Active Substance: PACLITAXEL
     Indication: NON-SMALL CELL LUNG CANCER
     Dosage: 160 MILLIGRAM,THREE TIMES EVERY FOUR WEEKS
     Route: 041
     Dates: start: 20190320, end: 20190626
  2. KEYTRUDA [Suspect]
     Active Substance: PEMBROLIZUMAB
     Indication: NON-SMALL CELL LUNG CANCER
     Dosage: 200 MILLIGRAM, Q3W
     Route: 041
     Dates: start: 20190320, end: 20190612
  3. CARBOPLATIN. [Suspect]
     Active Substance: CARBOPLATIN
     Indication: NON-SMALL CELL LUNG CANCER
     Dosage: 300 MILLIGRAM, EVERY 4 WEEKS
     Route: 041
     Dates: start: 20190320, end: 20190626

REACTIONS (5)
  - Malignant neoplasm progression [Fatal]
  - Blood creatinine increased [Not Recovered/Not Resolved]
  - Epilepsy [Not Recovered/Not Resolved]
  - Off label use [Unknown]
  - Renal impairment [Not Recovered/Not Resolved]

NARRATIVE: CASE EVENT DATE: 201907
